FAERS Safety Report 16701746 (Version 1)
Quarter: 2019Q3

REPORT INFORMATION
  Report Type: Spontaneous
  Country: CA (occurrence: CA)
  Receive Date: 20190814
  Receipt Date: 20190814
  Transmission Date: 20191004
  Serious: Yes (Other)
  Sender: FDA-Public Use
  Company Number: CA-PFIZER INC-2019334376

PATIENT
  Age: 76 Year
  Sex: Female
  Weight: 65.6 kg

DRUGS (1)
  1. SULFASALAZINE. [Suspect]
     Active Substance: SULFASALAZINE
     Dosage: 1 G AM (500 MG BID)
     Route: 048

REACTIONS (2)
  - Drug ineffective [Unknown]
  - Tuberculosis [Unknown]
